FAERS Safety Report 7088605-3 (Version None)
Quarter: 2010Q4

REPORT INFORMATION
  Report Type: 
  Country: None (occurrence: None)
  Receive Date: 20101029
  Receipt Date: 20101014
  Transmission Date: 20110411
  Serious: Yes (Congenital Anomaly)
  Sender: FDA-Public Use
  Company Number: AUR-APL-2010-02670

PATIENT

DRUGS (3)
  1. ZIDOVUDINE [Suspect]
     Dosage: TRANSPLACENT
     Route: 064
  2. ISENTRESS [Suspect]
     Dosage: 800MG/DAY-TRANSPLACENT
     Route: 064
  3. PREZISTA [Suspect]
     Dosage: 1200MG/DAY - TRANSPLACENTAL
     Route: 064

REACTIONS (2)
  - CONGENITAL ANOMALY [None]
  - MATERNAL DRUGS AFFECTING FOETUS [None]
